FAERS Safety Report 17323920 (Version 1)
Quarter: 2020Q1

REPORT INFORMATION
  Report Type: Spontaneous
  Country: GB (occurrence: GB)
  Receive Date: 20200127
  Receipt Date: 20200127
  Transmission Date: 20200409
  Serious: Yes (Other)
  Sender: FDA-Public Use
  Company Number: GB-TEVA-2020-GB-1172948

PATIENT
  Age: 56 Year
  Sex: Female

DRUGS (9)
  1. FOLINIC ACID [Suspect]
     Active Substance: LEUCOVORIN
     Indication: COLON CANCER
     Dosage: 412.5 MG, 256MG/M2
     Route: 042
     Dates: start: 2019
  2. APREPITANT. [Concomitant]
     Active Substance: APREPITANT
  3. DEXAMETHASONE. [Concomitant]
     Active Substance: DEXAMETHASONE
     Dosage: 8 MG
  4. GRANISETRON [Concomitant]
     Active Substance: GRANISETRON
  5. ATROPINE. [Concomitant]
     Active Substance: ATROPINE
  6. IRINOTECAN [Suspect]
     Active Substance: IRINOTECAN
     Indication: COLON CANCER
     Dosage: 186 MG
     Route: 042
     Dates: start: 2019
  7. FLUOROURACIL. [Suspect]
     Active Substance: FLUOROURACIL
     Indication: COLON CANCER
     Dosage: 2475MG, 1536MG/M^2
     Route: 042
     Dates: start: 2019
  8. CALCIUM FOLINATE [Concomitant]
     Active Substance: LEUCOVORIN CALCIUM
  9. AVASTIN [Suspect]
     Active Substance: BEVACIZUMAB
     Indication: COLON CANCER
     Dosage: (5MG/KG), FOR 12 CYCLES, 295MG
     Route: 042
     Dates: start: 2019

REACTIONS (7)
  - Headache [Not Recovered/Not Resolved]
  - Nausea [Not Recovered/Not Resolved]
  - Taste disorder [Not Recovered/Not Resolved]
  - Constipation [Not Recovered/Not Resolved]
  - Neuropathy peripheral [Not Recovered/Not Resolved]
  - Decreased appetite [Not Recovered/Not Resolved]
  - Fatigue [Not Recovered/Not Resolved]
